FAERS Safety Report 21661257 (Version 1)
Quarter: 2022Q4

REPORT INFORMATION
  Report Type: Report from Study
  Country: DK (occurrence: DK)
  Receive Date: 20221130
  Receipt Date: 20221130
  Transmission Date: 20230113
  Serious: Yes (Hospitalization, Other)
  Sender: FDA-Public Use
  Company Number: DK-CELGENE-DNK-20200806813

PATIENT
  Age: 73 Year
  Sex: Male

DRUGS (31)
  1. REVLIMID [Suspect]
     Active Substance: LENALIDOMIDE
     Indication: Plasma cell myeloma
     Dosage: 25 MILLIGRAM
     Route: 048
     Dates: start: 20190215, end: 20190307
  2. REVLIMID [Suspect]
     Active Substance: LENALIDOMIDE
     Dosage: 25 MILLIGRAM
     Route: 048
     Dates: start: 20190315, end: 20190404
  3. REVLIMID [Suspect]
     Active Substance: LENALIDOMIDE
     Dosage: 25 MILLIGRAM
     Route: 048
     Dates: start: 20190412, end: 20190502
  4. REVLIMID [Suspect]
     Active Substance: LENALIDOMIDE
     Dosage: 25 MILLIGRAM
     Route: 048
     Dates: start: 20190510, end: 20190530
  5. REVLIMID [Suspect]
     Active Substance: LENALIDOMIDE
     Dosage: 25 MILLIGRAM
     Route: 048
     Dates: start: 20190607, end: 20190627
  6. REVLIMID [Suspect]
     Active Substance: LENALIDOMIDE
     Dosage: REASON IF DOSE WAS NOT ADMINISTERED.: RESTPERIOD
     Route: 065
     Dates: start: 20200207, end: 20200213
  7. REVLIMID [Suspect]
     Active Substance: LENALIDOMIDE
     Dosage: QOD
     Route: 048
     Dates: start: 20200214, end: 20200305
  8. REVLIMID [Suspect]
     Active Substance: LENALIDOMIDE
     Dosage: REASON IF DOSE WAS NOT ADMINISTERED.: RESTPERIOD
     Route: 065
     Dates: start: 20200306, end: 20200312
  9. REVLIMID [Suspect]
     Active Substance: LENALIDOMIDE
     Dosage: QOD
     Route: 048
     Dates: start: 20200313, end: 20200402
  10. REVLIMID [Suspect]
     Active Substance: LENALIDOMIDE
     Dosage: REASON IF DOSE WAS NOT ADMINISTERED.: RESTPERIOD
     Route: 065
     Dates: start: 20200403, end: 20200409
  11. REVLIMID [Suspect]
     Active Substance: LENALIDOMIDE
     Dosage: QOD
     Route: 048
     Dates: start: 20200410, end: 20200430
  12. REVLIMID [Suspect]
     Active Substance: LENALIDOMIDE
     Dosage: REASON IF DOSE WAS NOT ADMINISTERED.: RESTPERIOD
     Route: 065
     Dates: start: 20200501, end: 20200507
  13. REVLIMID [Suspect]
     Active Substance: LENALIDOMIDE
     Dosage: QOD
     Route: 048
     Dates: start: 20200508, end: 20200528
  14. REVLIMID [Suspect]
     Active Substance: LENALIDOMIDE
     Dosage: REASON IF DOSE WAS NOT ADMINISTERED.: RESTPERIOD
     Route: 065
     Dates: start: 20200529, end: 20200604
  15. REVLIMID [Suspect]
     Active Substance: LENALIDOMIDE
     Dosage: QOD
     Route: 048
     Dates: start: 20200605, end: 20200625
  16. REVLIMID [Suspect]
     Active Substance: LENALIDOMIDE
     Dosage: REASON IF DOSE WAS NOT ADMINISTERED.: RESTPERIOD
     Route: 065
     Dates: start: 20200626, end: 20200702
  17. REVLIMID [Suspect]
     Active Substance: LENALIDOMIDE
     Dosage: QOD
     Route: 048
     Dates: start: 20200703, end: 20200723
  18. REVLIMID [Suspect]
     Active Substance: LENALIDOMIDE
     Dosage: REASON IF DOSE WAS NOT ADMINISTERED.: RESTPERIOD
     Route: 065
     Dates: start: 20200724, end: 20200728
  19. REVLIMID [Suspect]
     Active Substance: LENALIDOMIDE
     Dosage: REASON IF DOSE WAS NOT ADMINISTERED.: RESTPERIOD
     Route: 065
     Dates: start: 20200729, end: 20200825
  20. DEXAMETHASONE [Suspect]
     Active Substance: DEXAMETHASONE
     Indication: Plasma cell myeloma
     Dosage: 20 MILLIGRAM
     Route: 048
     Dates: start: 20190215, end: 20190301
  21. DEXAMETHASONE [Suspect]
     Active Substance: DEXAMETHASONE
     Dosage: 20 MILLIGRAM
     Route: 048
     Dates: start: 20190315, end: 20190329
  22. DEXAMETHASONE [Suspect]
     Active Substance: DEXAMETHASONE
     Dosage: 20 MILLIGRAM
     Route: 048
     Dates: start: 20190412, end: 20190426
  23. DEXAMETHASONE [Suspect]
     Active Substance: DEXAMETHASONE
     Dosage: 20 MILLIGRAM
     Route: 048
     Dates: start: 20190510, end: 20190525
  24. DEXAMETHASONE [Suspect]
     Active Substance: DEXAMETHASONE
     Dosage: 20 MILLIGRAM
     Route: 048
     Dates: start: 20190607, end: 20200622
  25. DEXAMETHASONE [Suspect]
     Active Substance: DEXAMETHASONE
     Route: 048
     Dates: start: 20200313, end: 20200328
  26. DEXAMETHASONE [Suspect]
     Active Substance: DEXAMETHASONE
     Route: 048
     Dates: start: 20200410, end: 20200425
  27. DEXAMETHASONE [Suspect]
     Active Substance: DEXAMETHASONE
     Route: 048
     Dates: start: 20200508, end: 20200523
  28. DEXAMETHASONE [Suspect]
     Active Substance: DEXAMETHASONE
     Route: 048
     Dates: start: 20200605, end: 20200620
  29. DEXAMETHASONE [Suspect]
     Active Substance: DEXAMETHASONE
     Route: 048
     Dates: start: 20200703, end: 20200718
  30. DEXAMETHASONE [Suspect]
     Active Substance: DEXAMETHASONE
     Route: 065
     Dates: start: 20200731, end: 20200815
  31. DEXAMETHASONE [Suspect]
     Active Substance: DEXAMETHASONE
     Route: 048
     Dates: start: 20200214, end: 20200229

REACTIONS (4)
  - Postoperative wound infection [Recovered/Resolved]
  - Pruritus [Not Recovered/Not Resolved]
  - Constipation [Not Recovered/Not Resolved]
  - Diarrhoea [Not Recovered/Not Resolved]

NARRATIVE: CASE EVENT DATE: 20200520
